FAERS Safety Report 11656017 (Version 3)
Quarter: 2016Q2

REPORT INFORMATION
  Report Type: Report from Study
  Country: US (occurrence: US)
  Receive Date: 20151023
  Receipt Date: 20160519
  Transmission Date: 20160815
  Serious: Yes (Other)
  Sender: FDA-Public Use
  Company Number: US-ACTELION-A-NJ2015-126092

PATIENT
  Age: 79 Year
  Sex: Female

DRUGS (3)
  1. MACITENTAN [Suspect]
     Active Substance: MACITENTAN
     Indication: PULMONARY ARTERIAL HYPERTENSION
     Dosage: 10 MG, QD
     Route: 048
     Dates: start: 20140512
  2. ADCIRCA [Concomitant]
     Active Substance: TADALAFIL
  3. REMODULIN [Concomitant]
     Active Substance: TREPROSTINIL
     Route: 051

REACTIONS (12)
  - Infusion site pain [Unknown]
  - Complication associated with device [Unknown]
  - Catheter placement [Unknown]
  - Condition aggravated [Unknown]
  - Nausea [Unknown]
  - Fluid retention [Unknown]
  - Cystitis [Unknown]
  - Headache [Unknown]
  - Bladder cancer [Unknown]
  - Vomiting [Unknown]
  - Weight decreased [Unknown]
  - Neuralgia [Unknown]

NARRATIVE: CASE EVENT DATE: 201604
